FAERS Safety Report 4407496-X (Version None)
Quarter: 2004Q3

REPORT INFORMATION
  Report Type: 
  Country: None (occurrence: None)
  Receive Date: 20040721
  Receipt Date: 20040709
  Transmission Date: 20050211
  Serious: Yes (Hospitalization)
  Sender: FDA-Public Use
  Company Number: 207585

PATIENT
  Age: 50 Year
  Sex: Male
  Weight: 104 kg

DRUGS (4)
  1. MABTHERA (RITUXIMAB) CONC FOR SOLUTION FOR INFUSION [Suspect]
     Dosage: INTRAVENOUS
     Route: 042
  2. FUROSEMIDE [Concomitant]
  3. LISINOPRIL [Concomitant]
  4. ALPRAZOLAM [Concomitant]

REACTIONS (2)
  - THERAPY NON-RESPONDER [None]
  - VENTRICULAR TACHYCARDIA [None]
